FAERS Safety Report 9316456 (Version 1)
Quarter: 2013Q2

REPORT INFORMATION
  Report Type: Report from Study
  Country: AU (occurrence: AU)
  Receive Date: 20130530
  Receipt Date: 20130530
  Transmission Date: 20140414
  Serious: Yes (Hospitalization)
  Sender: FDA-Public Use
  Company Number: AU-JNJFOC-JAAUS18773

PATIENT
  Age: 62 Year
  Sex: Male

DRUGS (6)
  1. FENTANYL [Suspect]
     Indication: CANCER PAIN
     Route: 062
     Dates: start: 19921217
  2. PREDNISOLONE [Concomitant]
     Route: 048
     Dates: start: 19921210
  3. PARACETAMOL [Concomitant]
     Indication: PAIN
     Route: 048
     Dates: start: 19921019
  4. ASPIRIN [Concomitant]
     Indication: PAIN
     Route: 048
     Dates: start: 19921009
  5. MORPHINE SR [Concomitant]
     Indication: PAIN
     Route: 048
     Dates: start: 19921112
  6. COLOXYL [Concomitant]
     Route: 048
     Dates: start: 19921231

REACTIONS (3)
  - Asthenia [Not Recovered/Not Resolved]
  - Decreased appetite [Not Recovered/Not Resolved]
  - Dyspnoea [Not Recovered/Not Resolved]
